FAERS Safety Report 7661437-0 (Version None)
Quarter: 2011Q3

REPORT INFORMATION
  Report Type: 
  Country: None (occurrence: None)
  Receive Date: 20110805
  Receipt Date: 20101014
  Transmission Date: 20111222
  Serious: No
  Sender: FDA-Public Use
  Company Number: US-ABBOTT-10P-163-0679016-00

PATIENT
  Sex: Female
  Weight: 70.37 kg

DRUGS (5)
  1. M.V.I. [Concomitant]
     Indication: PRODUCT USED FOR UNKNOWN INDICATION
  2. CELECOXIB [Concomitant]
     Indication: ARTHRITIS
  3. VITAMIN B COMPLEX CAP [Concomitant]
     Indication: PRODUCT USED FOR UNKNOWN INDICATION
  4. NIASPAN [Suspect]
     Indication: BLOOD CHOLESTEROL
     Dates: start: 20100501
  5. HERBAL SUPPLEMENT [Concomitant]
     Indication: MENOPAUSE

REACTIONS (2)
  - FLUSHING [None]
  - ANAL PRURITUS [None]
